FAERS Safety Report 23447118 (Version 1)
Quarter: 2024Q1

REPORT INFORMATION
  Report Type: Spontaneous
  Country: CA (occurrence: CA)
  Receive Date: 20240126
  Receipt Date: 20240126
  Transmission Date: 20240409
  Serious: Yes (Hospitalization)
  Sender: FDA-Public Use
  Company Number: CA-AstraZeneca-2024A013494

PATIENT
  Age: 45 Year
  Sex: Female
  Weight: 53 kg

DRUGS (1)
  1. TRASTUZUMAB DERUXTECAN [Suspect]
     Active Substance: TRASTUZUMAB DERUXTECAN
     Indication: HER2 positive breast cancer
     Dosage: 242 MG, ONCE EVERY 3 WK (1 EVERY 3 WEEKS)
     Route: 042

REACTIONS (14)
  - Asthenia [Unknown]
  - Condition aggravated [Unknown]
  - Decreased appetite [Unknown]
  - Diarrhoea [Unknown]
  - Drug intolerance [Unknown]
  - Eyelid ptosis [Unknown]
  - Fatigue [Unknown]
  - Hypoaesthesia [Unknown]
  - Malaise [Unknown]
  - Nausea [Unknown]
  - Pathological fracture [Unknown]
  - Vomiting [Unknown]
  - Off label use [Unknown]
  - Inappropriate schedule of product administration [Unknown]
